FAERS Safety Report 17543156 (Version 2)
Quarter: 2020Q1

REPORT INFORMATION
  Report Type: Report from Study
  Country: None (occurrence: US)
  Receive Date: 20200316
  Receipt Date: 20200330
  Transmission Date: 20200409
  Serious: Yes (Hospitalization, Other)
  Sender: FDA-Public Use
  Company Number: US-ABBVIE-20K-163-3319855-00

PATIENT
  Sex: Female

DRUGS (1)
  1. HUMIRA [Suspect]
     Active Substance: ADALIMUMAB
     Indication: RHEUMATOID ARTHRITIS
     Route: 058
     Dates: start: 20190305, end: 201909

REACTIONS (3)
  - Implantable defibrillator insertion [Recovered/Resolved]
  - Osteoarthritis [Unknown]
  - Skin ulcer [Unknown]

NARRATIVE: CASE EVENT DATE: 2019
